FAERS Safety Report 19898101 (Version 1)
Quarter: 2021Q3

REPORT INFORMATION
  Report Type: Spontaneous
  Country: US (occurrence: US)
  Receive Date: 20210929
  Receipt Date: 20210929
  Transmission Date: 20211014
  Serious: No
  Sender: FDA-Public Use
  Company Number: US-EMD SERONO-9190832

PATIENT
  Age: 24 Year
  Sex: Female
  Weight: 79 kg

DRUGS (6)
  1. TOLPAZEN [Concomitant]
     Indication: PRODUCT USED FOR UNKNOWN INDICATION
     Dosage: 30 (UNSPECIFIED UNITS)
     Route: 048
  2. GABAPENTIN. [Concomitant]
     Active Substance: GABAPENTIN
     Indication: PRODUCT USED FOR UNKNOWN INDICATION
     Dosage: 300 (UNSPECIFIED UNITS)
     Route: 048
  3. MAVENCLAD [Suspect]
     Active Substance: CLADRIBINE
     Dosage: SECOND MONTH THERAPY: TOOK 20 MG ON DAY 1 AND STOPPED DUE TO BEING PREGNANT.
     Dates: start: 20201002, end: 20201002
  4. ELAVIL [Concomitant]
     Active Substance: AMITRIPTYLINE HYDROCHLORIDE
     Indication: PRODUCT USED FOR UNKNOWN INDICATION
     Dosage: 25 (UNSPECIFIED UNITS)
     Route: 048
  5. TENOFOVIR ALAFENAMIDE FUMARATE [Concomitant]
     Active Substance: TENOFOVIR ALAFENAMIDE FUMARATE
     Indication: CHRONIC HEPATITIS B
     Dosage: 25 (UNSPECIFIED UNITS)
     Route: 048
  6. MAVENCLAD [Suspect]
     Active Substance: CLADRIBINE
     Indication: MULTIPLE SCLEROSIS
     Dosage: FIRST MONTH THERAPY
     Dates: start: 20200910

REACTIONS (3)
  - Multiple sclerosis relapse [Not Recovered/Not Resolved]
  - Normal newborn [Recovered/Resolved]
  - Maternal exposure during pregnancy [Recovered/Resolved]

NARRATIVE: CASE EVENT DATE: 202009
